FAERS Safety Report 7090758-8 (Version None)
Quarter: 2010Q4

REPORT INFORMATION
  Report Type: 
  Country: None (occurrence: None)
  Receive Date: 20101012
  Receipt Date: 20100729
  Transmission Date: 20110411
  Serious: No
  Sender: FDA-Public Use
  Company Number: US_001239

PATIENT
  Sex: Female
  Weight: 67.586 kg

DRUGS (4)
  1. KUVAN [Suspect]
     Indication: PHENYLKETONURIA
     Dosage: 1400 MG QD, ORAL
     Route: 048
     Dates: start: 20090101
  2. PANTOPRAZOLE [Concomitant]
  3. SINGULAIR [Concomitant]
  4. CITRACAL [Concomitant]

REACTIONS (3)
  - CHEST DISCOMFORT [None]
  - COUGH [None]
  - VIRAL INFECTION [None]
